FAERS Safety Report 15690437 (Version 1)
Quarter: 2018Q4

REPORT INFORMATION
  Report Type: Spontaneous
  Country: US (occurrence: US)
  Receive Date: 20181205
  Receipt Date: 20181205
  Transmission Date: 20190205
  Serious: No
  Sender: FDA-Public Use
  Company Number: US-PFIZER INC-2018500121

PATIENT
  Age: 70 Year
  Sex: Female

DRUGS (1)
  1. SOMAVERT [Suspect]
     Active Substance: PEGVISOMANT
     Dosage: 10 MG, DAILY
     Dates: start: 20171207

REACTIONS (11)
  - Blood sodium increased [Unknown]
  - Insulin-like growth factor increased [Unknown]
  - Blood chloride increased [Unknown]
  - Very low density lipoprotein increased [Unknown]
  - Blood glucose increased [Unknown]
  - Blood triglycerides increased [Unknown]
  - Low density lipoprotein increased [Unknown]
  - Haemoglobin increased [Unknown]
  - Blood prolactin decreased [Unknown]
  - Alanine aminotransferase increased [Unknown]
  - Blood urea nitrogen/creatinine ratio increased [Unknown]
